FAERS Safety Report 4604847-8 (Version None)
Quarter: 2005Q1

REPORT INFORMATION
  Report Type: 
  Country: None (occurrence: None)
  Receive Date: 20050311
  Receipt Date: 20050203
  Transmission Date: 20050727
  Serious: Yes (Hospitalization, Disabling, Other)
  Sender: FDA-Public Use
  Company Number: 200511068GDDC

PATIENT
  Age: 72 Year
  Sex: Male
  Weight: 91 kg

DRUGS (11)
  1. TAXOTERE [Suspect]
     Indication: PROSTATE CANCER
     Route: 042
     Dates: start: 20040526, end: 20041110
  2. PREDNISONE [Suspect]
     Indication: PROSTATE CANCER
     Route: 048
     Dates: start: 20040107
  3. TUMS [Concomitant]
     Route: 048
     Dates: start: 20040818
  4. CALCIUM GLUCONATE [Concomitant]
     Route: 048
     Dates: start: 20010101
  5. PROCHLORPERAZINE [Concomitant]
     Indication: NAUSEA
     Route: 048
     Dates: start: 20040818
  6. VITAMIN D [Concomitant]
     Route: 048
     Dates: start: 20010101
  7. MULTI-VITAMINS [Concomitant]
     Route: 048
     Dates: start: 20010101
  8. ASPIRIN [Concomitant]
     Indication: PROPHYLAXIS
     Route: 048
     Dates: start: 20030903
  9. LIPITOR [Concomitant]
     Indication: BLOOD CHOLESTEROL INCREASED
     Route: 048
     Dates: start: 20010101
  10. SELENIUM TRACE METAL ADDITIVE [Concomitant]
     Route: 048
     Dates: start: 20010101
  11. COLACE [Concomitant]
     Route: 048
     Dates: start: 20031201

REACTIONS (1)
  - CEREBROVASCULAR ACCIDENT [None]
